FAERS Safety Report 8192221-X (Version None)
Quarter: 2012Q1

REPORT INFORMATION
  Report Type: 
  Country: None (occurrence: None)
  Receive Date: 20120307
  Receipt Date: 20120225
  Transmission Date: 20120608
  Serious: Yes (Death, Other)
  Sender: FDA-Public Use
  Company Number: AU-ROCHE-1043587

PATIENT
  Sex: Male

DRUGS (1)
  1. ISOTRETINOIN [Suspect]
     Indication: PRODUCT USED FOR UNKNOWN INDICATION

REACTIONS (11)
  - SOCIAL AVOIDANT BEHAVIOUR [None]
  - ILL-DEFINED DISORDER [None]
  - COGNITIVE DISORDER [None]
  - COMPLETED SUICIDE [None]
  - ANGER [None]
  - FATIGUE [None]
  - DEPRESSION SUICIDAL [None]
  - MENTAL DISORDER [None]
  - MEMORY IMPAIRMENT [None]
  - AUTISM [None]
  - EMOTIONAL DISORDER [None]
